FAERS Safety Report 4427156-9 (Version None)
Quarter: 2004Q3

REPORT INFORMATION
  Report Type: 
  Country: None (occurrence: None)
  Receive Date: 20040726
  Receipt Date: 20040427
  Transmission Date: 20050211
  Serious: No
  Sender: FDA-Public Use
  Company Number: USA040465956

PATIENT
  Age: 63 Year
  Sex: Female
  Weight: 68 kg

DRUGS (5)
  1. FORTEO [Suspect]
     Indication: OSTEOPOROSIS
     Dosage: 20 UG DAY
     Dates: start: 20031001
  2. THEOPHYLLINE [Concomitant]
  3. ATROVENT [Concomitant]
  4. FLOVENT [Concomitant]
  5. FORADIL [Concomitant]

REACTIONS (5)
  - DIZZINESS [None]
  - FEELING ABNORMAL [None]
  - GASTROENTERITIS VIRAL [None]
  - INJECTION SITE HAEMORRHAGE [None]
  - NAUSEA [None]
